FAERS Safety Report 6938718-9 (Version None)
Quarter: 2010Q3

REPORT INFORMATION
  Report Type: 
  Country: None (occurrence: None)
  Receive Date: 20100824
  Receipt Date: 20100811
  Transmission Date: 20110219
  Serious: Yes (Other)
  Sender: FDA-Public Use
  Company Number: PHHY2010US53265

PATIENT
  Sex: Female

DRUGS (9)
  1. VALTURNA [Suspect]
  2. HYDROCHLOROTHIAZIDE [Concomitant]
     Dosage: 12.5 MG IN THE MORNING ONCE A DAY
  3. METOPROLOL [Concomitant]
     Dosage: 50 MG, BID
  4. LISINOPRIL [Concomitant]
     Dosage: 10 MG HALF OR ONE, TWICE A DAY
  5. WARFARIN [Concomitant]
     Dosage: 5 MG
  6. CLONIDINE [Concomitant]
  7. DOCUSATE SODIUM [Concomitant]
     Dosage: 100 MG ONE AT NIGHT
  8. SIMVASTATIN [Concomitant]
     Dosage: 40 MG AT BED TIME
  9. ALPRAZOLAM [Concomitant]
     Dosage: 25 (UNKNOWN UNITS)

REACTIONS (5)
  - ATRIAL FIBRILLATION [None]
  - FEELING ABNORMAL [None]
  - HEART RATE DECREASED [None]
  - HYPOAESTHESIA [None]
  - HYPOTENSION [None]
